FAERS Safety Report 21208901 (Version 2)
Quarter: 2022Q3

REPORT INFORMATION
  Report Type: Spontaneous
  Country: BR (occurrence: BR)
  Receive Date: 20220812
  Receipt Date: 20220816
  Transmission Date: 20221026
  Serious: Yes (Other)
  Sender: FDA-Public Use
  Company Number: BR-NOVARTISPH-NVSC2022BR182470

PATIENT
  Age: 77 Year
  Sex: Female

DRUGS (2)
  1. TEGRETOL XR [Suspect]
     Active Substance: CARBAMAZEPINE
     Indication: Product used for unknown indication
     Dosage: 200 MG (60 TABLET)
     Route: 065
  2. TEGRETOL [Suspect]
     Active Substance: CARBAMAZEPINE
     Indication: Product used for unknown indication
     Dosage: 200 MG, 10 DAYS AGO
     Route: 065

REACTIONS (9)
  - Drug dependence [Unknown]
  - Taste disorder [Unknown]
  - Abdominal pain upper [Not Recovered/Not Resolved]
  - Abdominal distension [Not Recovered/Not Resolved]
  - Insomnia [Unknown]
  - Headache [Unknown]
  - Abdominal pain [Not Recovered/Not Resolved]
  - Malaise [Unknown]
  - Product availability issue [Unknown]

NARRATIVE: CASE EVENT DATE: 20220804
